FAERS Safety Report 12413897 (Version 2)
Quarter: 2016Q2

REPORT INFORMATION
  Report Type: Report from Study
  Country: FR (occurrence: FR)
  Receive Date: 20160527
  Receipt Date: 20160621
  Transmission Date: 20160815
  Serious: Yes (Hospitalization)
  Sender: FDA-Public Use
  Company Number: FR-ROCHE-1660182

PATIENT
  Age: 50 Year
  Sex: Female
  Weight: 53 kg

DRUGS (14)
  1. CODEIN [Suspect]
     Active Substance: CODEINE
     Indication: BACK PAIN
     Route: 048
     Dates: start: 201605, end: 201605
  2. ATEZOLIZUMAB [Suspect]
     Active Substance: ATEZOLIZUMAB
     Indication: BLADDER TRANSITIONAL CELL CARCINOMA METASTATIC
     Dosage: MOST RECENT DOSE PRIOR TO EVENT: 21/OCT/2015?MOST RECENT DOSE PRIOR TO FUNCTIONAL COLOPATHY: 04/FEB/
     Route: 042
     Dates: start: 20150415
  3. BEFIZAL [Concomitant]
     Active Substance: BEZAFIBRATE
     Indication: HYPERCHOLESTEROLAEMIA
     Route: 048
     Dates: start: 2012, end: 2015
  4. EFFEXOR [Concomitant]
     Active Substance: VENLAFAXINE HYDROCHLORIDE
     Indication: DEPRESSION
     Route: 048
     Dates: start: 201209
  5. INNOHEP [Concomitant]
     Active Substance: TINZAPARIN SODIUM
     Indication: DEEP VEIN THROMBOSIS
     Route: 058
     Dates: start: 201402, end: 20160224
  6. GAVISCON (ALGINIC ACID) [Concomitant]
     Indication: DYSPEPSIA
     Route: 048
     Dates: start: 2013
  7. BEFIZAL [Concomitant]
     Active Substance: BEZAFIBRATE
     Indication: HYPERCHOLESTEROLAEMIA
     Route: 048
     Dates: start: 201511
  8. SPASFON (PHLOROGLUCINOL) [Concomitant]
     Indication: ABDOMINAL PAIN
     Route: 048
     Dates: start: 20150819
  9. INEXIUM [Concomitant]
     Active Substance: ESOMEPRAZOLE
     Indication: DYSPEPSIA
     Route: 048
     Dates: start: 201506
  10. DIFFU K [Concomitant]
     Active Substance: POTASSIUM CHLORIDE
     Indication: HYPOKALAEMIA
     Route: 048
     Dates: start: 201604
  11. TRANXENE T-TAB [Concomitant]
     Active Substance: CLORAZEPATE DIPOTASSIUM
     Indication: DEPRESSION
     Route: 048
     Dates: start: 201202
  12. INNOHEP [Concomitant]
     Active Substance: TINZAPARIN SODIUM
     Route: 058
     Dates: start: 20160224
  13. UVEDOSE [Concomitant]
     Active Substance: CHOLECALCIFEROL
     Indication: VITAMIN D DECREASED
     Route: 048
     Dates: start: 20151115
  14. GLYCERINE [Concomitant]
     Active Substance: GLYCERIN
     Indication: CONSTIPATION
     Route: 054
     Dates: start: 2009

REACTIONS (5)
  - Escherichia pyelonephritis [Recovered/Resolved]
  - Gastrointestinal disorder [Recovered/Resolved]
  - Subileus [Recovered/Resolved]
  - Subileus [Recovered/Resolved]
  - Enteritis [Recovered/Resolved]

NARRATIVE: CASE EVENT DATE: 20151105
